FAERS Safety Report 16367791 (Version 1)
Quarter: 2019Q2

REPORT INFORMATION
  Report Type: Spontaneous
  Country: US (occurrence: US)
  Receive Date: 20190529
  Receipt Date: 20190529
  Transmission Date: 20190711
  Serious: No
  Sender: FDA-Public Use
  Company Number: US-BTG-201800018

PATIENT
  Age: 17 Year
  Sex: Female
  Weight: 64 kg

DRUGS (11)
  1. METHOTREXATE. [Suspect]
     Active Substance: METHOTREXATE
     Indication: OSTEOSARCOMA
     Dosage: 12 G/M2, 20 G, SINGLE
     Dates: start: 20180321, end: 20180321
  2. VORAXAZE [Suspect]
     Active Substance: GLUCARPIDASE
     Indication: TOXICITY TO VARIOUS AGENTS
     Dosage: 3000 UNITS, SINGLE
     Route: 065
     Dates: start: 20180323, end: 20180323
  3. MAGNESIUM [Interacting]
     Active Substance: MAGNESIUM
     Indication: HYPOMAGNESAEMIA
     Dosage: 2000 MG, QD
     Route: 048
     Dates: start: 20180322
  4. LASIX [Interacting]
     Active Substance: FUROSEMIDE
     Indication: PRODUCT USED FOR UNKNOWN INDICATION
     Dosage: 40 MG, BID (9 DOSES)
     Dates: start: 20180324, end: 20180328
  5. MAGNESIUM [Interacting]
     Active Substance: MAGNESIUM
     Indication: HYPOMAGNESAEMIA
     Dosage: 2000 MG, QD
     Route: 048
     Dates: start: 20180325
  6. VORAXAZE [Suspect]
     Active Substance: GLUCARPIDASE
     Indication: TOXICITY TO VARIOUS AGENTS
     Dosage: 3000 UNITS, SINGLE
     Route: 065
     Dates: start: 20180210, end: 20180210
  7. LASIX [Interacting]
     Active Substance: FUROSEMIDE
     Indication: PRODUCT USED FOR UNKNOWN INDICATION
     Dosage: 40 MG, QD
     Dates: start: 20180329, end: 20180404
  8. METHOTREXATE. [Suspect]
     Active Substance: METHOTREXATE
     Indication: OSTEOSARCOMA
     Dosage: 12 G/M2, 20 G, SINGLE
     Dates: start: 20180207, end: 20180207
  9. LEUCOVORIN. [Concomitant]
     Active Substance: LEUCOVORIN
     Indication: TOXICITY TO VARIOUS AGENTS
     Dosage: 150 MG/M2, Q3H
     Dates: start: 20180323
  10. MAGNESIUM [Interacting]
     Active Substance: MAGNESIUM
     Indication: HYPOMAGNESAEMIA
     Dosage: 2000 MG, QD
     Route: 042
     Dates: start: 20180325, end: 20180405
  11. LEUCOVORIN. [Concomitant]
     Active Substance: LEUCOVORIN
     Indication: TOXICITY TO VARIOUS AGENTS
     Dosage: 15 MG/M2, Q6H

REACTIONS (3)
  - Weight increased [Recovering/Resolving]
  - Prescribed underdose [Unknown]
  - Blood creatinine increased [Recovered/Resolved]

NARRATIVE: CASE EVENT DATE: 20180324
